FAERS Safety Report 25328369 (Version 1)
Quarter: 2025Q2

REPORT INFORMATION
  Report Type: Report from Study
  Country: US (occurrence: US)
  Receive Date: 20250518
  Receipt Date: 20250518
  Transmission Date: 20250716
  Serious: Yes (Other)
  Sender: ABBVIE
  Company Number: US-ABBVIE-6282596

PATIENT
  Sex: Female

DRUGS (1)
  1. HUMIRA [Suspect]
     Active Substance: ADALIMUMAB
     Indication: Colitis ulcerative
     Route: 058
     Dates: start: 20240801

REACTIONS (7)
  - Large intestinal haemorrhage [Unknown]
  - Haematochezia [Unknown]
  - Abdominal pain upper [Unknown]
  - Unevaluable event [Unknown]
  - Bloody discharge [Unknown]
  - Drug ineffective [Unknown]
  - Diarrhoea [Unknown]
